FAERS Safety Report 15606979 (Version 1)
Quarter: 2018Q4

REPORT INFORMATION
  Report Type: Spontaneous
  Country: BR (occurrence: BR)
  Receive Date: 20181112
  Receipt Date: 20181112
  Transmission Date: 20190205
  Serious: Yes (Hospitalization, Disabling, Other)
  Sender: FDA-Public Use
  Company Number: BR-GLAXOSMITHKLINE-BR2018GSK203915

PATIENT
  Age: 67 Year
  Sex: Female
  Weight: 72 kg

DRUGS (5)
  1. ACICLOVIR [Suspect]
     Active Substance: ACYCLOVIR
     Indication: HERPES VIRUS INFECTION
     Dosage: UNK
  2. PREGABALIN. [Concomitant]
     Active Substance: PREGABALIN
     Indication: MYALGIA
     Dosage: UNK
     Route: 048
  3. TYLEX (ACETAMINOPHEN + CODEINE PHOSPHATE) [Concomitant]
     Indication: PAIN
     Route: 048
  4. VALTREX [Suspect]
     Active Substance: VALACYCLOVIR HYDROCHLORIDE
     Indication: HERPES VIRUS INFECTION
     Dosage: 6 DF, UNK, TABLETS PER DAY
     Route: 048
     Dates: start: 20181102, end: 20181104
  5. DOMPERIDONE [Concomitant]
     Active Substance: DOMPERIDONE
     Indication: PRODUCT USED FOR UNKNOWN INDICATION
     Dosage: UNK
     Route: 048

REACTIONS (3)
  - Gait inability [Unknown]
  - Paralysis [Not Recovered/Not Resolved]
  - Hypokinesia [Unknown]

NARRATIVE: CASE EVENT DATE: 20181104
